FAERS Safety Report 9378502 (Version 1)
Quarter: 2013Q3

REPORT INFORMATION
  Report Type: Spontaneous
  Country: US (occurrence: US)
  Receive Date: 20130702
  Receipt Date: 20130702
  Transmission Date: 20140515
  Serious: Yes (Hospitalization, Other)
  Sender: FDA-Public Use
  Company Number: US-AMGEN-USASP2013045885

PATIENT
  Age: 37 Year
  Sex: Male
  Weight: 127.89 kg

DRUGS (2)
  1. EPOGEN [Suspect]
     Indication: RENAL FAILURE CHRONIC
     Dosage: 28000 UNIT, 3 TIMES/WK
     Route: 065
  2. COUMADIN                           /00014802/ [Concomitant]
     Dosage: UNK
     Route: 065

REACTIONS (3)
  - Anaemia [Unknown]
  - International normalised ratio increased [Unknown]
  - Weight decreased [Unknown]
